FAERS Safety Report 25184586 (Version 1)
Quarter: 2025Q2

REPORT INFORMATION
  Report Type: Spontaneous
  Country: FR (occurrence: FR)
  Receive Date: 20250410
  Receipt Date: 20250410
  Transmission Date: 20250717
  Serious: Yes (Other)
  Sender: MERCK SHARP & DOHME LLC
  Company Number: None

PATIENT
  Age: 88 Year
  Sex: Female

DRUGS (2)
  1. ERTAPENEM [Suspect]
     Active Substance: ERTAPENEM
     Indication: Pyelonephritis
     Route: 042
     Dates: start: 20250303, end: 20250304
  2. MEROPENEM [Suspect]
     Active Substance: MEROPENEM
     Indication: Pyelonephritis
     Route: 042
     Dates: start: 20250304, end: 20250306

REACTIONS (1)
  - Confusional state [Recovered/Resolved]

NARRATIVE: CASE EVENT DATE: 20250303
